FAERS Safety Report 13352909 (Version 1)
Quarter: 2017Q1

REPORT INFORMATION
  Report Type: Spontaneous
  Country: JP (occurrence: JP)
  Receive Date: 20170320
  Receipt Date: 20170320
  Transmission Date: 20170429
  Serious: Yes (Hospitalization)
  Sender: FDA-Public Use
  Company Number: JP-MYLANLABS-2017M1015822

PATIENT

DRUGS (1)
  1. PREDNISOLONE. [Suspect]
     Active Substance: PREDNISOLONE
     Indication: AORTIC ANEURYSM
     Dosage: 40 MG, QD
     Route: 065

REACTIONS (2)
  - Aortic aneurysm [Recovering/Resolving]
  - Helicobacter infection [Recovering/Resolving]
